FAERS Safety Report 5900030-4 (Version None)
Quarter: 2008Q3

REPORT INFORMATION
  Report Type: 
  Country: None (occurrence: None)
  Receive Date: 20080925
  Receipt Date: 20080925
  Transmission Date: 20090109
  Serious: Yes (Life-Threatening, Hospitalization, Disabling)
  Sender: FDA-Public Use
  Company Number: None

PATIENT
  Sex: Male
  Weight: 92.5 kg

DRUGS (6)
  1. BEVACIZUMAB GENENTECH [Suspect]
     Indication: MANTLE CELL LYMPHOMA
     Dosage: 1425 MG IV
     Route: 042
     Dates: start: 20080911, end: 20080911
  2. CYCLOPHOSPHAMIDE [Suspect]
     Indication: MANTLE CELL LYMPHOMA
     Dosage: IV
     Route: 042
     Dates: start: 20080913, end: 20080916
  3. DOXORUBICIN HCL [Suspect]
     Indication: MANTLE CELL LYMPHOMA
     Dosage: IV
     Route: 042
     Dates: start: 20080913, end: 20080916
  4. VINCRISTINE [Suspect]
     Indication: MANTLE CELL LYMPHOMA
     Dosage: IV
     Route: 042
     Dates: start: 20080913, end: 20080916
  5. PREDNISOLONE [Suspect]
     Indication: MANTLE CELL LYMPHOMA
     Dosage: IV
     Route: 042
     Dates: start: 20080913, end: 20080916
  6. RITUXIMAB [Suspect]
     Indication: MANTLE CELL LYMPHOMA
     Dates: start: 20080913, end: 20080916

REACTIONS (8)
  - ACIDOSIS [None]
  - CARDIAC ARREST [None]
  - CORONARY ARTERY DISEASE [None]
  - ISCHAEMIA [None]
  - LYMPHOCYTOSIS [None]
  - PULMONARY OEDEMA [None]
  - RESPIRATORY DISTRESS [None]
  - TUMOUR LYSIS SYNDROME [None]
